FAERS Safety Report 5341667-3 (Version None)
Quarter: 2007Q2

REPORT INFORMATION
  Report Type: 
  Country: None (occurrence: None)
  Receive Date: 20070601
  Receipt Date: 20070528
  Transmission Date: 20071010
  Serious: Yes (Hospitalization, Other)
  Sender: FDA-Public Use
  Company Number: JP-BRISTOL-MYERS SQUIBB COMPANY-13781984

PATIENT
  Age: 55 Year
  Sex: Female

DRUGS (6)
  1. TAXOL [Suspect]
     Indication: UTERINE CANCER
     Route: 041
     Dates: start: 20070423, end: 20070423
  2. PARAPLATIN [Suspect]
     Indication: UTERINE CANCER
     Route: 041
     Dates: start: 20070423, end: 20070423
  3. DEXAMETHASONE SODIUM PHOSPHATE [Concomitant]
     Route: 042
     Dates: start: 20070422, end: 20070422
  4. DIPHENHYDRAMINE HCL [Concomitant]
     Route: 048
     Dates: start: 20070423, end: 20070423
  5. SEROTONE [Concomitant]
     Route: 041
     Dates: start: 20070423, end: 20070423
  6. GASTER [Concomitant]
     Route: 041
     Dates: start: 20070423, end: 20070423

REACTIONS (4)
  - ILEUS [None]
  - NEUTROPHIL COUNT DECREASED [None]
  - SMALL INTESTINAL HAEMORRHAGE [None]
  - WHITE BLOOD CELL COUNT DECREASED [None]
